FAERS Safety Report 21362869 (Version 1)
Quarter: 2022Q3

REPORT INFORMATION
  Report Type: Report from Study
  Country: US (occurrence: US)
  Receive Date: 20220922
  Receipt Date: 20220922
  Transmission Date: 20221027
  Serious: Yes (Other)
  Sender: FDA-Public Use
  Company Number: US-HORIZON THERAPEUTICS-HZN-2022-004696

PATIENT

DRUGS (6)
  1. TEPEZZA [Suspect]
     Active Substance: TEPROTUMUMAB-TRBW
     Indication: Endocrine ophthalmopathy
     Dosage: FIRST INFUSION
     Route: 042
     Dates: start: 20220412
  2. TEPEZZA [Suspect]
     Active Substance: TEPROTUMUMAB-TRBW
     Dosage: INFUSION 4
     Route: 042
     Dates: start: 20220614
  3. TEPEZZA [Suspect]
     Active Substance: TEPROTUMUMAB-TRBW
     Dosage: INFUSION 5
     Route: 042
     Dates: start: 20220711
  4. TEPEZZA [Suspect]
     Active Substance: TEPROTUMUMAB-TRBW
     Dosage: INFUSION 6
     Route: 042
     Dates: start: 20220802
  5. TEPEZZA [Suspect]
     Active Substance: TEPROTUMUMAB-TRBW
     Dosage: INFUSION 7
     Route: 042
     Dates: start: 20220823
  6. TEPEZZA [Suspect]
     Active Substance: TEPROTUMUMAB-TRBW
     Dosage: INFUSION 8
     Route: 042
     Dates: start: 20220913, end: 20220913

REACTIONS (15)
  - Type 2 diabetes mellitus [Unknown]
  - Decreased appetite [Unknown]
  - Pain [Unknown]
  - Food aversion [Unknown]
  - Somnolence [Unknown]
  - Feeling abnormal [Unknown]
  - Blood cholesterol increased [Unknown]
  - Hepatic steatosis [Unknown]
  - Headache [Unknown]
  - Asthenia [Unknown]
  - Nausea [Unknown]
  - Muscle spasms [Unknown]
  - Blood glucose increased [Unknown]
  - Thyroid hormones increased [Not Recovered/Not Resolved]
  - Inappropriate schedule of product administration [Unknown]

NARRATIVE: CASE EVENT DATE: 20220101
